FAERS Safety Report 5639677-1 (Version None)
Quarter: 2008Q1

REPORT INFORMATION
  Report Type: 
  Country: None (occurrence: None)
  Receive Date: 20080222
  Receipt Date: 20080208
  Transmission Date: 20080703
  Serious: Yes (Hospitalization)
  Sender: FDA-Public Use
  Company Number: 2008BI000912

PATIENT
  Age: 82 Year
  Sex: Female
  Weight: 90.7194 kg

DRUGS (7)
  1. AVONEX [Suspect]
     Indication: MULTIPLE SCLEROSIS
     Dosage: 30 UG; QW; IM
     Route: 030
     Dates: start: 19990101
  2. THYROID TAB [Concomitant]
  3. ALTENONOL [Concomitant]
  4. PRILOSEC [Concomitant]
  5. ESTRACE [Concomitant]
  6. AMITRIPTYLINE HCL [Concomitant]
  7. HYDRAZALINE [Concomitant]

REACTIONS (13)
  - BUNDLE BRANCH BLOCK LEFT [None]
  - CHEST PAIN [None]
  - CONDITION AGGRAVATED [None]
  - CONFUSIONAL STATE [None]
  - DELIRIUM [None]
  - HYPERTENSION [None]
  - INSOMNIA [None]
  - LUNG INFECTION [None]
  - MUSCLE STRAIN [None]
  - PLEURAL EFFUSION [None]
  - PROGRESSIVE RELAPSING MULTIPLE SCLEROSIS [None]
  - PULMONARY OEDEMA [None]
  - TENDON INJURY [None]
